FAERS Safety Report 6379299-0 (Version None)
Quarter: 2009Q3

REPORT INFORMATION
  Report Type: 
  Country: None (occurrence: None)
  Receive Date: 20090923
  Receipt Date: 20090923
  Transmission Date: 20100115
  Serious: Yes (Life-Threatening)
  Sender: FDA-Public Use
  Company Number: None

PATIENT
  Age: 72 Year
  Sex: Male
  Weight: 106 kg

DRUGS (9)
  1. HYDROMORPHONE [Suspect]
     Indication: PAIN
     Dosage: 0/0.4/10 PCA PRN
     Dates: start: 20090605
  2. DOCUSATE [Concomitant]
  3. FUROSEMIDE [Concomitant]
  4. INSULIN [Concomitant]
  5. LANSOPRAZOLE [Concomitant]
  6. LEVOTHYROXINE SODIUM [Concomitant]
  7. NADDOL [Concomitant]
  8. TERAZOSIN HCL [Concomitant]
  9. VALSARTAN [Concomitant]

REACTIONS (3)
  - BLOOD PRESSURE DECREASED [None]
  - MENTAL STATUS CHANGES [None]
  - RESPIRATORY RATE DECREASED [None]
